FAERS Safety Report 19452542 (Version 2)
Quarter: 2021Q3

REPORT INFORMATION
  Report Type: Spontaneous
  Country: JP (occurrence: JP)
  Receive Date: 20210623
  Receipt Date: 20210716
  Transmission Date: 20211014
  Serious: Yes (Hospitalization)
  Sender: FDA-Public Use
  Company Number: JP-ROCHE-2855197

PATIENT
  Age: 13 Year
  Sex: Male

DRUGS (1)
  1. XOLAIR [Suspect]
     Active Substance: OMALIZUMAB
     Indication: DIFFUSE PANBRONCHIOLITIS
     Route: 058

REACTIONS (2)
  - No adverse event [Unknown]
  - Drug ineffective [Unknown]
